FAERS Safety Report 10346949 (Version 1)
Quarter: 2014Q3

REPORT INFORMATION
  Report Type: Spontaneous
  Country: US (occurrence: US)
  Receive Date: 20140729
  Receipt Date: 20140729
  Transmission Date: 20150326
  Serious: No
  Sender: FDA-Public Use
  Company Number: US-GLAXOSMITHKLINE-A1051877A

PATIENT
  Age: 82 Year
  Sex: Male

DRUGS (8)
  1. BABY ASPIRIN [Concomitant]
     Active Substance: ASPIRIN
  2. CPAP [Concomitant]
     Active Substance: DEVICE
  3. NORVASC [Concomitant]
     Active Substance: AMLODIPINE BESYLATE
  4. JALYN [Suspect]
     Active Substance: DUTASTERIDE\TAMSULOSIN HYDROCHLORIDE
     Indication: BENIGN PROSTATIC HYPERPLASIA
     Dosage: 1CAP PER DAY
     Route: 048
     Dates: start: 20131118
  5. CIPROFLOXACIN. [Concomitant]
     Active Substance: CIPROFLOXACIN
  6. LISINOPRIL. [Concomitant]
     Active Substance: LISINOPRIL
  7. SYNTHROID [Concomitant]
     Active Substance: LEVOTHYROXINE SODIUM
  8. SIMVASTATIN. [Concomitant]
     Active Substance: SIMVASTATIN

REACTIONS (3)
  - Frustration [Not Recovered/Not Resolved]
  - Nocturia [Not Recovered/Not Resolved]
  - Pollakiuria [Not Recovered/Not Resolved]

NARRATIVE: CASE EVENT DATE: 20131126
